FAERS Safety Report 8320285-9 (Version None)
Quarter: 2012Q2

REPORT INFORMATION
  Report Type: 
  Country: None (occurrence: None)
  Receive Date: 20120426
  Receipt Date: 20120426
  Transmission Date: 20120825
  Serious: Yes (Other)
  Sender: FDA-Public Use
  Company Number: None

PATIENT
  Age: 69 Year
  Sex: Female
  Weight: 73.9363 kg

DRUGS (1)
  1. VIIBRYD [Suspect]
     Indication: DEPRESSION
     Dosage: 40 MG ONCE DAILY MOUTH
     Route: 048
     Dates: start: 20111227, end: 20120221

REACTIONS (9)
  - SUICIDAL IDEATION [None]
  - CONFUSIONAL STATE [None]
  - AGITATION [None]
  - DEPRESSION [None]
  - TOXICITY TO VARIOUS AGENTS [None]
  - CONDITION AGGRAVATED [None]
  - HALLUCINATION [None]
  - NAUSEA [None]
  - MALAISE [None]
